FAERS Safety Report 9140619 (Version 1)
Quarter: 2013Q1

REPORT INFORMATION
  Report Type: Spontaneous
  Country: RO (occurrence: RO)
  Receive Date: 20130305
  Receipt Date: 20130305
  Transmission Date: 20140127
  Serious: Yes (Life-Threatening, Hospitalization, Other)
  Sender: FDA-Public Use
  Company Number: RO-ABBOTT-13P-135-1044477-00

PATIENT
  Age: 66 Year
  Sex: Female
  Weight: 93 kg

DRUGS (5)
  1. HUMIRA [Suspect]
     Indication: RHEUMATOID ARTHRITIS
     Route: 058
     Dates: start: 20121102, end: 201302
  2. HYPOTENSIVE TREATMENT [Concomitant]
     Indication: HYPERTENSION
  3. CORONARODILATATOR TREATMENT [Concomitant]
     Indication: HYPERTENSION
  4. HYPOCHOLESTEROLEMIANT [Concomitant]
     Indication: DYSLIPIDAEMIA
  5. DIURETICS [Concomitant]
     Indication: HYPERTENSION

REACTIONS (2)
  - Haemorrhagic stroke [Recovering/Resolving]
  - Hemiparesis [Recovering/Resolving]
